FAERS Safety Report 11803974 (Version 12)
Quarter: 2019Q1

REPORT INFORMATION
  Report Type: Spontaneous
  Country: US (occurrence: US)
  Receive Date: 20151204
  Receipt Date: 20190215
  Transmission Date: 20190417
  Serious: No
  Sender: FDA-Public Use
  Company Number: US-ASTRAZENECA-2015SF11670

PATIENT
  Age: 25741 Day
  Sex: Male
  Weight: 103 kg

DRUGS (9)
  1. HUMALOG [Concomitant]
     Active Substance: INSULIN LISPRO
     Route: 058
  2. BYETTA [Suspect]
     Active Substance: EXENATIDE
     Indication: TYPE 2 DIABETES MELLITUS
     Dosage: TWO TIMES A DAY
     Route: 058
  3. INSULIN [Concomitant]
     Active Substance: INSULIN NOS
     Route: 058
  4. METFORMIN [Concomitant]
     Active Substance: METFORMIN HYDROCHLORIDE
  5. GLUCOPHAGE [Concomitant]
     Active Substance: METFORMIN HYDROCHLORIDE
  6. BYDUREON BCISE [Suspect]
     Active Substance: EXENATIDE
     Indication: TYPE 2 DIABETES MELLITUS
     Route: 058
     Dates: start: 201809
  7. BYDUREON [Suspect]
     Active Substance: EXENATIDE
     Indication: TYPE 2 DIABETES MELLITUS
     Route: 058
  8. NPH INSULIN [Concomitant]
     Active Substance: INSULIN BEEF
     Dosage: 7 UNITS TWO TIMES A DAY
  9. WARFARIN [Concomitant]
     Active Substance: WARFARIN

REACTIONS (20)
  - Nausea [Unknown]
  - Weight decreased [Unknown]
  - Vomiting [Unknown]
  - Feeling abnormal [Recovered/Resolved]
  - Malaise [Unknown]
  - Device issue [Unknown]
  - Needle issue [Unknown]
  - Blood glucose increased [Not Recovered/Not Resolved]
  - Incorrect dose administered [Unknown]
  - Hypoglycaemia [Unknown]
  - Dizziness [Recovered/Resolved]
  - Hot flush [Recovered/Resolved]
  - Weight increased [Unknown]
  - Dysgeusia [Unknown]
  - Diabetes mellitus inadequate control [Unknown]
  - Off label use [Unknown]
  - Underdose [Unknown]
  - Injection site haemorrhage [Recovered/Resolved]
  - Extra dose administered [Unknown]
  - Product use issue [Unknown]

NARRATIVE: CASE EVENT DATE: 20180121
